FAERS Safety Report 4823321-7 (Version None)
Quarter: 2005Q4

REPORT INFORMATION
  Report Type: 
  Country: None (occurrence: None)
  Receive Date: 20051107
  Receipt Date: 20051028
  Transmission Date: 20060501
  Serious: Yes (Life-Threatening, Hospitalization)
  Sender: FDA-Public Use
  Company Number: 2005130684

PATIENT
  Age: 57 Year
  Sex: Male
  Weight: 75 kg

DRUGS (4)
  1. ZOLOFT [Suspect]
     Indication: MAJOR DEPRESSION
     Dosage: 200 MG (1 IN 1 D), ORAL
     Route: 048
     Dates: start: 20030306, end: 20030321
  2. ZYPREXA [Suspect]
     Indication: DELUSION
     Dates: start: 20030306, end: 20030321
  3. ZYPREXA [Suspect]
     Indication: DEPRESSION
     Dates: start: 20030306, end: 20030321
  4. XIMOVAN ^AVENTIS PHARMA^ (ZOPICLONE) [Concomitant]

REACTIONS (8)
  - FALL [None]
  - GAIT DISTURBANCE [None]
  - HEADACHE [None]
  - HYPERTENSION [None]
  - HYPOKINESIA [None]
  - POLYTRAUMATISM [None]
  - SUICIDE ATTEMPT [None]
  - VISUAL DISTURBANCE [None]
